FAERS Safety Report 6140471-6 (Version None)
Quarter: 2009Q1

REPORT INFORMATION
  Report Type: 
  Country: None (occurrence: None)
  Receive Date: 20090331
  Receipt Date: 20090324
  Transmission Date: 20090719
  Serious: No
  Sender: FDA-Public Use
  Company Number: 223624

PATIENT
  Sex: Female

DRUGS (2)
  1. CARBOPLATIN [Suspect]
     Indication: NEOPLASM MALIGNANT
     Dosage: 50 MG, CONTINUOUS, INTRAVENOUS
     Route: 042
     Dates: start: 20090319, end: 20090319
  2. CARBOPLATIN [Suspect]
     Indication: NEOPLASM MALIGNANT
     Dosage: 150 MG, CONTINUOUS, INTRAVENOUS
     Route: 042
     Dates: start: 20090319, end: 20090319

REACTIONS (2)
  - DRUG HYPERSENSITIVITY [None]
  - RESPIRATORY DISTRESS [None]
